FAERS Safety Report 8618943-1 (Version None)
Quarter: 2012Q3

REPORT INFORMATION
  Report Type: 
  Country: None (occurrence: None)
  Receive Date: 20120824
  Receipt Date: 20120820
  Transmission Date: 20120928
  Serious: Yes (Other)
  Sender: FDA-Public Use
  Company Number: PHHY2012AU042395

PATIENT
  Age: 53 Year
  Sex: Female

DRUGS (1)
  1. SANDOSTATIN LAR [Suspect]
     Indication: CARCINOID SYNDROME
     Dosage: 20 MG, UNK
     Route: 030
     Dates: start: 20100101

REACTIONS (5)
  - VAGINAL HAEMORRHAGE [None]
  - FEELING ABNORMAL [None]
  - ULTRASOUND SCAN ABNORMAL [None]
  - ABDOMINAL DISCOMFORT [None]
  - BLOOD TEST ABNORMAL [None]
